FAERS Safety Report 26092417 (Version 1)
Quarter: 2025Q4

REPORT INFORMATION
  Report Type: Spontaneous
  Country: EU (occurrence: EU)
  Receive Date: 20251126
  Receipt Date: 20251126
  Transmission Date: 20260118
  Serious: Yes (Life-Threatening, Hospitalization)
  Sender: MYLAN
  Company Number: None

PATIENT
  Age: 14 Year
  Sex: Male
  Weight: 46 kg

DRUGS (9)
  1. DEXAMETHASONE [Suspect]
     Active Substance: DEXAMETHASONE
     Indication: General anaesthesia
     Dosage: UNK
     Dates: start: 20251021, end: 20251021
  2. SUFENTANIL [Suspect]
     Active Substance: SUFENTANIL
     Indication: General anaesthesia
     Dosage: UNK
     Dates: start: 20251021, end: 20251021
  3. PROPOFOL [Suspect]
     Active Substance: PROPOFOL
     Indication: General anaesthesia
     Dosage: UNK
     Dates: start: 20251021, end: 20251021
  4. ONDANSETRON [Suspect]
     Active Substance: ONDANSETRON
     Indication: General anaesthesia
     Dosage: UNK
     Dates: start: 20251021, end: 20251021
  5. ROPIVACAINE [Suspect]
     Active Substance: ROPIVACAINE
     Indication: Local anaesthesia
     Dosage: UNK
     Dates: start: 20251021, end: 20251021
  6. ACETAMINOPHEN [Suspect]
     Active Substance: ACETAMINOPHEN
     Indication: General anaesthesia
     Dosage: UNK
     Dates: start: 20251021, end: 20251021
  7. KETAMINE [Suspect]
     Active Substance: KETAMINE
     Indication: General anaesthesia
     Dosage: UNK
     Dates: start: 20251021, end: 20251021
  8. KETOPROFEN [Suspect]
     Active Substance: KETOPROFEN
     Indication: General anaesthesia
     Dosage: UNK
     Dates: start: 20251021, end: 20251021
  9. XYLOCAINE [Suspect]
     Active Substance: LIDOCAINE HYDROCHLORIDE
     Indication: General anaesthesia
     Dosage: 0.5 PERCENT PRESERVATIVE-FREE (50 MG/10 ML), SOLUTION FOR INJECTION IN AMPOULE
     Dates: start: 20251021, end: 20251021

REACTIONS (1)
  - Anaphylactic shock [Recovered/Resolved]

NARRATIVE: CASE EVENT DATE: 20251021
